FAERS Safety Report 13672215 (Version 1)
Quarter: 2017Q2

REPORT INFORMATION
  Report Type: Spontaneous
  Country: US (occurrence: US)
  Receive Date: 20170620
  Receipt Date: 20170620
  Transmission Date: 20170830
  Serious: No
  Sender: FDA-Public Use
  Company Number: None

PATIENT
  Age: 79 Year
  Sex: Male
  Weight: 105.6 kg

DRUGS (1)
  1. HEPARIN [Suspect]
     Active Substance: HEPARIN SODIUM
     Dosage: ?          OTHER FREQUENCY:ONCE;?INTRAVENOUS (NOT OTHERWISE SPECIFIED)
     Route: 042
     Dates: start: 20170619, end: 20170619

REACTIONS (2)
  - Therapeutic response decreased [None]
  - Product quality issue [None]

NARRATIVE: CASE EVENT DATE: 20170619
